FAERS Safety Report 7530496-8 (Version None)
Quarter: 2011Q2

REPORT INFORMATION
  Report Type: 
  Country: None (occurrence: None)
  Receive Date: 20110607
  Receipt Date: 20110524
  Transmission Date: 20111010
  Serious: Yes (Other)
  Sender: FDA-Public Use
  Company Number: US-UCBSA-033869

PATIENT
  Sex: Female
  Weight: 64.86 kg

DRUGS (10)
  1. CLARITIN [Concomitant]
     Dosage: ONE TABLET
     Route: 048
  2. PREDNISONE [Concomitant]
     Indication: INFLAMMATION
     Route: 048
  3. CITRICAL [Concomitant]
     Dosage: 2 TABLETS DAILY
     Route: 048
  4. CLONOPIN [Concomitant]
     Indication: RESTLESS LEGS SYNDROME
     Route: 048
  5. CIMZIA [Suspect]
     Indication: RHEUMATOID ARTHRITIS
     Dosage: INDUCTION DOSE
     Route: 058
     Dates: start: 20110101, end: 20110101
  6. IMURAN [Concomitant]
     Indication: RHEUMATOID ARTHRITIS
     Route: 048
  7. VITAMIN D [Concomitant]
     Dosage: 2 TABLETS DAILY
     Route: 048
  8. LODINE [Concomitant]
     Indication: INFLAMMATION
     Route: 048
  9. PRILOSEC [Concomitant]
     Route: 048
  10. CIMZIA [Suspect]
     Route: 058
     Dates: start: 20110523

REACTIONS (5)
  - PAIN [None]
  - PHOTOSENSITIVITY REACTION [None]
  - PRURITUS [None]
  - NASAL DISCOMFORT [None]
  - HAEMORRHAGE [None]
